FAERS Safety Report 6616743-5 (Version None)
Quarter: 2010Q1

REPORT INFORMATION
  Report Type: 
  Country: None (occurrence: None)
  Receive Date: 20100305
  Receipt Date: 20100224
  Transmission Date: 20100710
  Serious: Yes (Death, Congenital Anomaly)
  Sender: FDA-Public Use
  Company Number: EE-ABBOTT-10P-221-0628505-00

PATIENT
  Sex: Female

DRUGS (2)
  1. TEVETEN [Suspect]
     Indication: DRUG EXPOSURE DURING PREGNANCY
     Route: 064
  2. MONOPRIL [Suspect]
     Indication: DRUG EXPOSURE DURING PREGNANCY
     Route: 064

REACTIONS (5)
  - ACUTE RESPIRATORY FAILURE [None]
  - CARDIOVASCULAR INSUFFICIENCY [None]
  - CONGENITAL ANOMALY [None]
  - DRUG EXPOSURE DURING PREGNANCY [None]
  - RENAL FAILURE [None]
